FAERS Safety Report 10490521 (Version 1)
Quarter: 2014Q4

REPORT INFORMATION
  Report Type: Spontaneous
  Country: DE (occurrence: DE)
  Receive Date: 20141002
  Receipt Date: 20141002
  Transmission Date: 20150528
  Serious: Yes (Other)
  Sender: FDA-Public Use
  Company Number: DE-PFIZER INC-2014268854

PATIENT
  Age: 33 Year
  Sex: Female

DRUGS (3)
  1. RISPERIDONE. [Suspect]
     Active Substance: RISPERIDONE
     Indication: DEPRESSION
     Dosage: 4 MG, 1X/DAY, 0. - 23.1. GESTATIONAL WEEK
     Route: 048
     Dates: start: 20121123
  2. VENLAFAXINE HCL [Suspect]
     Active Substance: VENLAFAXINE HYDROCHLORIDE
     Indication: DEPRESSION
     Dosage: 250 MG, DAILY
     Route: 048
     Dates: start: 20121123
  3. VENLAFAXINE HCL [Suspect]
     Active Substance: VENLAFAXINE HYDROCHLORIDE
     Dosage: 225 MG, DAILY, 0. - 35.6. GESTATIONAL WEEK
     Route: 048

REACTIONS (1)
  - Gestational diabetes [Recovered/Resolved]

NARRATIVE: CASE EVENT DATE: 2013
